FAERS Safety Report 10230044 (Version 1)
Quarter: 2014Q2

REPORT INFORMATION
  Report Type: Spontaneous
  Country: US (occurrence: US)
  Receive Date: 20140611
  Receipt Date: 20140611
  Transmission Date: 20141212
  Serious: No
  Sender: FDA-Public Use
  Company Number: US-ABBVIE-13P-163-1169110-00

PATIENT
  Age: 74 Year
  Sex: Female

DRUGS (1)
  1. K-TAB [Suspect]
     Indication: MINERAL SUPPLEMENTATION
     Dosage: 3 TABLETS DAILY: 2 W/BREAKFAST + 1 W/DINNER
     Dates: start: 2012

REACTIONS (1)
  - Medication residue present [Recovered/Resolved]
